FAERS Safety Report 10748859 (Version 2)
Quarter: 2015Q1

REPORT INFORMATION
  Report Type: Report from Study
  Country: CA (occurrence: CA)
  Receive Date: 20150129
  Receipt Date: 20150219
  Transmission Date: 20150721
  Serious: Yes (Hospitalization, Other)
  Sender: FDA-Public Use
  Company Number: CA-ABBVIE-15K-028-1336856-00

PATIENT
  Age: 64 Year
  Sex: Female

DRUGS (2)
  1. HUMIRA [Suspect]
     Active Substance: ADALIMUMAB
     Indication: CROHN^S DISEASE
     Route: 058
     Dates: start: 20110614, end: 20140919
  2. HUMIRA [Suspect]
     Active Substance: ADALIMUMAB
     Route: 058
     Dates: start: 20141014

REACTIONS (7)
  - Abdominal distension [Recovering/Resolving]
  - Intestinal perforation [Recovering/Resolving]
  - Small intestinal obstruction [Recovering/Resolving]
  - Diarrhoea [Recovering/Resolving]
  - Tooth abscess [Recovered/Resolved]
  - Postoperative adhesion [Recovering/Resolving]
  - Pharyngitis streptococcal [Recovered/Resolved]

NARRATIVE: CASE EVENT DATE: 2014
